FAERS Safety Report 6031922-6 (Version None)
Quarter: 2008Q4

REPORT INFORMATION
  Report Type: 
  Country: None (occurrence: None)
  Receive Date: 20081224
  Receipt Date: 20080909
  Transmission Date: 20090506
  Serious: No
  Sender: FDA-Public Use
  Company Number: 2008PV036659

PATIENT
  Age: 82 Year
  Sex: Female
  Weight: 72.5755 kg

DRUGS (6)
  1. SYMLIN [Suspect]
     Indication: TYPE 2 DIABETES MELLITUS
     Dosage: 120 MCG; BID; SC
     Route: 058
     Dates: start: 20080101
  2. SYMLIN [Suspect]
     Indication: TYPE 2 DIABETES MELLITUS
     Dosage: 120 MCG; BID; SC, 60 MCG; BID; SC
     Route: 058
     Dates: start: 20070101, end: 20070101
  3. SYMLIN [Suspect]
     Indication: TYPE 2 DIABETES MELLITUS
     Dosage: 120 MCG; BID; SC, 60 MCG; BID; SC
     Route: 058
     Dates: start: 20070101, end: 20080101
  4. NOVOLOG [Concomitant]
  5. LANTUS [Concomitant]
  6. NASONEX [Concomitant]

REACTIONS (3)
  - DIZZINESS [None]
  - IRRITABILITY [None]
  - SINUS DISORDER [None]
